FAERS Safety Report 21594259 (Version 1)
Quarter: 2022Q4

REPORT INFORMATION
  Report Type: Report from Study
  Country: US (occurrence: US)
  Receive Date: 20221115
  Receipt Date: 20221115
  Transmission Date: 20230113
  Serious: Yes (Hospitalization)
  Sender: FDA-Public Use
  Company Number: US-ABBVIE-4200463

PATIENT
  Sex: Female

DRUGS (19)
  1. HUMIRA [Suspect]
     Active Substance: ADALIMUMAB
     Indication: Crohn^s disease
     Route: 058
     Dates: start: 20191004
  2. WELLBUTRIN S TB1 200MG [Concomitant]
     Indication: Product used for unknown indication
  3. ERYTHROMYCIN TBE 500MG [Concomitant]
     Indication: Product used for unknown indication
  4. ALBUTEROL SU POW [Concomitant]
     Indication: Product used for unknown indication
  5. MIRAPEX TAB 1.5MG [Concomitant]
     Indication: Product used for unknown indication
  6. ABILIFY [Concomitant]
     Active Substance: ARIPIPRAZOLE
     Indication: Product used for unknown indication
  7. NEXIUM CPD 40MG [Concomitant]
     Indication: Product used for unknown indication
  8. ZANAFLEX CAP 6MG [Concomitant]
     Indication: Product used for unknown indication
  9. POTASSIUM CH PAC 20MEQ [Concomitant]
     Indication: Product used for unknown indication
  10. SYNTHROID TAB 300MCG [Concomitant]
     Indication: Product used for unknown indication
  11. OXYCODONE HC POW [Concomitant]
     Indication: Product used for unknown indication
  12. FIBERCON TAB 625MG [Concomitant]
     Indication: Product used for unknown indication
  13. CYMBALTA [Concomitant]
     Active Substance: DULOXETINE HYDROCHLORIDE
     Indication: Product used for unknown indication
  14. ADVAIR DISKU AEP 100-50MC [Concomitant]
     Indication: Product used for unknown indication
  15. PREDNISONE TAB 50MG [Concomitant]
     Indication: Product used for unknown indication
  16. HYCODAN SYR 5-1.5MG/5ML [Concomitant]
     Indication: Product used for unknown indication
  17. BD ALLERGY SYRINGE [Concomitant]
     Indication: Product used for unknown indication
  18. SIN ULAIR TAB 10MG [Concomitant]
     Indication: Product used for unknown indication
  19. NORVASC [Concomitant]
     Active Substance: AMLODIPINE BESYLATE
     Indication: Product used for unknown indication

REACTIONS (1)
  - Hospitalisation [Unknown]
